FAERS Safety Report 10663643 (Version 1)
Quarter: 2014Q4

REPORT INFORMATION
  Report Type: Spontaneous
  Country: GR (occurrence: GR)
  Receive Date: 20141219
  Receipt Date: 20141219
  Transmission Date: 20150529
  Serious: Yes (Death, Hospitalization)
  Sender: FDA-Public Use
  Company Number: GR-CIPLA LTD.-2014GR02639

PATIENT
  Age: 69 Year
  Sex: Male

DRUGS (4)
  1. LOPINAVIR/RITONAVIR [Suspect]
     Active Substance: LOPINAVIR\RITONAVIR
     Dosage: 400 MG/ 100 MG, BID
     Route: 048
  2. RIBAVIRIN. [Suspect]
     Active Substance: RIBAVIRIN
     Dosage: 2000 MG, LOADING DOSE
     Route: 048
  3. RIBAVIRIN. [Suspect]
     Active Substance: RIBAVIRIN
     Dosage: 1200 MG, TID (EVERY 8 HRS) FOR 8 DAYS
     Route: 048
  4. PEGYLATED INTERFERON NOS [Suspect]
     Active Substance: PEGINTERFERON ALFA-2A OR PEGINTERFERON ALFA-2B OR PEGINTERFERON BETA-1A OR PEGINTERFERON LAMBDA-1A
     Dosage: 180 MCG, PER WEEK FOR 12 DAYS
     Route: 058

REACTIONS (6)
  - Constipation [Recovered/Resolved]
  - Jaundice [Unknown]
  - Septic shock [Fatal]
  - Hyperbilirubinaemia [Unknown]
  - Adenocarcinoma of colon [Unknown]
  - Renal failure [Unknown]
